FAERS Safety Report 5001044-1 (Version None)
Quarter: 2006Q2

REPORT INFORMATION
  Report Type: 
  Country: None (occurrence: None)
  Receive Date: 20060512
  Receipt Date: 20060503
  Transmission Date: 20061013
  Serious: Yes (Disabling)
  Sender: FDA-Public Use
  Company Number: FR-GLAXOSMITHKLINE-B0423059A

PATIENT
  Age: 76 Year
  Sex: Female
  Weight: 71 kg

DRUGS (4)
  1. ALKERAN [Suspect]
     Indication: MULTIPLE MYELOMA
     Dosage: 9MGM2 SEE DOSAGE TEXT
     Route: 048
     Dates: start: 20051122
  2. PREDNISONE TAB [Suspect]
     Indication: MULTIPLE MYELOMA
     Dosage: 60MGM2 SEE DOSAGE TEXT
     Route: 048
     Dates: start: 20051122
  3. VELCADE [Suspect]
     Indication: MULTIPLE MYELOMA
     Dosage: 1.3MGM2 SEE DOSAGE TEXT
     Route: 042
     Dates: start: 20051122
  4. ARANESP [Concomitant]
     Dosage: 500MCG PER DAY
     Route: 058
     Dates: start: 20051122

REACTIONS (3)
  - HYPOAESTHESIA [None]
  - MYALGIA [None]
  - NEUROPATHY PERIPHERAL [None]
